FAERS Safety Report 9462329 (Version 1)
Quarter: 2013Q3

REPORT INFORMATION
  Report Type: Spontaneous
  Country: FR (occurrence: FR)
  Receive Date: 20130816
  Receipt Date: 20130816
  Transmission Date: 20140515
  Serious: Yes (Hospitalization)
  Sender: FDA-Public Use
  Company Number: FR-ABBOTT-13X-056-1133115-00

PATIENT
  Age: 53 Year
  Sex: Female

DRUGS (12)
  1. DEPAKINE [Suspect]
     Indication: EPILEPSY
     Route: 048
     Dates: start: 20130321, end: 20130723
  2. ROVAMYCINE [Suspect]
     Indication: PRODUCT USED FOR UNKNOWN INDICATION
     Dosage: FORM STRENGTH: 3 MILLIUNIT(S), DAILY DOSE: 3 MILLIUNIT(S) ;TWICE A DAY
     Route: 048
     Dates: start: 20130718, end: 20130724
  3. URBANYL [Suspect]
     Indication: EPILEPSY
     Route: 048
     Dates: start: 20130321, end: 20130723
  4. ROCEPHINE [Suspect]
     Indication: PNEUMONIA
     Dosage: INTRAVENOUS (NOT OTHERWISE SPECIFIED), 2 GRAM(S);TOTAL
     Route: 042
     Dates: start: 20130718, end: 20130723
  5. CELLCEPT [Concomitant]
     Indication: PRODUCT USED FOR UNKNOWN INDICATION
     Dates: end: 20130723
  6. PREVISCAN [Concomitant]
     Indication: PRODUCT USED FOR UNKNOWN INDICATION
     Dates: end: 20130723
  7. BACTRIM [Concomitant]
     Indication: PRODUCT USED FOR UNKNOWN INDICATION
     Dates: end: 20130723
  8. KAYEXALATE [Concomitant]
     Indication: PRODUCT USED FOR UNKNOWN INDICATION
  9. RENAGEL [Concomitant]
     Indication: PRODUCT USED FOR UNKNOWN INDICATION
     Dates: end: 20130723
  10. TAHOR [Concomitant]
     Indication: PRODUCT USED FOR UNKNOWN INDICATION
     Dates: end: 20130723
  11. INEXIUM [Concomitant]
     Indication: PRODUCT USED FOR UNKNOWN INDICATION
     Dates: end: 20130723
  12. DELURSAN [Concomitant]
     Indication: PRODUCT USED FOR UNKNOWN INDICATION
     Dates: end: 20130723

REACTIONS (2)
  - Hepatitis acute [Recovering/Resolving]
  - Hepatic enzyme abnormal [Recovering/Resolving]
